FAERS Safety Report 6658704-6 (Version None)
Quarter: 2010Q1

REPORT INFORMATION
  Report Type: 
  Country: None (occurrence: None)
  Receive Date: 20100330
  Receipt Date: 20100319
  Transmission Date: 20100710
  Serious: Yes (Other)
  Sender: FDA-Public Use
  Company Number: PHHY2010MX03623

PATIENT
  Age: 61 Year
  Sex: Male

DRUGS (1)
  1. TRILEPTAL [Suspect]
     Indication: EPILEPSY
     Dosage: 4 DF/DAY
     Route: 048
     Dates: start: 20090101

REACTIONS (3)
  - COGNITIVE DISORDER [None]
  - CONVULSION [None]
  - INCOHERENT [None]
